FAERS Safety Report 6718520-3 (Version None)
Quarter: 2010Q2

REPORT INFORMATION
  Report Type: 
  Country: None (occurrence: None)
  Receive Date: 20100510
  Receipt Date: 20100428
  Transmission Date: 20101027
  Serious: Yes (Death, Other)
  Sender: FDA-Public Use
  Company Number: GB-WATSON-2010-06240

PATIENT

DRUGS (6)
  1. CITALOPRAM HYDROBROMIDE [Suspect]
     Indication: DEPRESSION
     Dosage: 10 MG/ML, UNK
     Route: 042
     Dates: start: 20100324, end: 20100327
  2. CITALOPRAM HYDROBROMIDE [Suspect]
     Dosage: 20 MG/ML, UNK
     Route: 050
     Dates: start: 20100328, end: 20100409
  3. CYCLIZINE [Concomitant]
     Indication: NAUSEA
     Dosage: 150 MG, UNK
     Route: 042
     Dates: start: 20100327, end: 20100409
  4. LITHIUM CARBONATE [Concomitant]
     Indication: DRUG USE FOR UNKNOWN INDICATION
  5. ONDANSETRON [Concomitant]
     Indication: NAUSEA
     Dosage: 12 MG, UNK
     Route: 042
     Dates: start: 20100401, end: 20100409
  6. SOLUTIONS FOR PARENTERAL NUTRITION [Concomitant]
     Indication: PARENTERAL NUTRITION
     Dosage: UNK MG, UNK
     Route: 042
     Dates: start: 20100321, end: 20100409

REACTIONS (2)
  - NAUSEA [None]
  - PNEUMONIA [None]
